FAERS Safety Report 16976061 (Version 1)
Quarter: 2019Q4

REPORT INFORMATION
  Report Type: Spontaneous
  Country: US (occurrence: US)
  Receive Date: 20190913
  Receipt Date: 20190913
  Transmission Date: 20200122
  Serious: Yes (Hospitalization)
  Sender: FDA-Public Use
  Company Number: None

PATIENT
  Sex: Female

DRUGS (22)
  1. FEROSUL [Concomitant]
  2. LOPERAMIDE [Concomitant]
     Active Substance: LOPERAMIDE
  3. MONTELUKAST [Concomitant]
     Active Substance: MONTELUKAST SODIUM
  4. VENTOLINE HFA [Concomitant]
  5. TAFINLAR [Suspect]
     Active Substance: DABRAFENIB MESYLATE
     Indication: THYROID CANCER
     Dosage: ?          OTHER DOSE:2-75 MG;?
     Route: 048
     Dates: start: 20190823
  6. GABAPENTIN. [Concomitant]
     Active Substance: GABAPENTIN
  7. LEVOTHYROXIN [Concomitant]
     Active Substance: LEVOTHYROXINE
  8. TRESIBA FLEX INJ [Concomitant]
  9. PANTOPRAZOLE [Concomitant]
     Active Substance: PANTOPRAZOLE
  10. FLOVENT FHA [Concomitant]
  11. LIOTHYRONINE [Concomitant]
     Active Substance: LIOTHYRONINE
  12. TACROLIMUS. [Concomitant]
     Active Substance: TACROLIMUS
  13. BENZONATATE. [Concomitant]
     Active Substance: BENZONATATE
  14. HUMALOG [Concomitant]
     Active Substance: INSULIN LISPRO
  15. MEKINIST [Suspect]
     Active Substance: TRAMETINIB DIMETHYL SULFOXIDE
     Indication: THYROID CANCER
     Route: 048
     Dates: start: 20190824
  16. ATORVASTATIN [Concomitant]
     Active Substance: ATORVASTATIN
  17. LOSARTAN POT [Concomitant]
     Active Substance: LOSARTAN POTASSIUM
  18. PILOCARPINE. [Concomitant]
     Active Substance: PILOCARPINE
  19. FLUTICASONE SPR [Concomitant]
  20. HYDRALAZINE [Concomitant]
     Active Substance: HYDRALAZINE HYDROCHLORIDE
  21. PROMETHAZINE [Concomitant]
     Active Substance: PROMETHAZINE HYDROCHLORIDE
  22. TRADJENTA [Concomitant]
     Active Substance: LINAGLIPTIN

REACTIONS (9)
  - Back pain [None]
  - Diarrhoea [None]
  - Blood sodium decreased [None]
  - Abdominal pain upper [None]
  - Therapy cessation [None]
  - Nausea [None]
  - Respiratory disorder [None]
  - Asthma [None]
  - Cough [None]
